FAERS Safety Report 4684162-7 (Version None)
Quarter: 2005Q2

REPORT INFORMATION
  Report Type: 
  Country: None (occurrence: None)
  Receive Date: 20050607
  Receipt Date: 20040907
  Transmission Date: 20051028
  Serious: Yes (Hospitalization, Other)
  Sender: FDA-Public Use
  Company Number: NL-GLAXOSMITHKLINE-B0344910A

PATIENT
  Age: 54 Year
  Sex: Male

DRUGS (4)
  1. ROPINIROLE HCL [Suspect]
     Indication: RESTLESS LEGS SYNDROME
     Dosage: .25MG PER DAY
     Dates: start: 20040708, end: 20040711
  2. PANTOPRAZOLE SODIUM [Concomitant]
  3. VITAMIN B COMPLEX CAP [Concomitant]
     Dosage: 1TAB PER DAY
     Dates: start: 20040406
  4. VITAMIN B6 [Concomitant]
     Dosage: 200MG PER DAY
     Dates: start: 20040406

REACTIONS (4)
  - ACUTE MYOCARDIAL INFARCTION [None]
  - BLOOD PRESSURE DECREASED [None]
  - CORONARY ARTERY ATHEROSCLEROSIS [None]
  - CORONARY ARTERY STENOSIS [None]
